FAERS Safety Report 4280442-8 (Version None)
Quarter: 2004Q1

REPORT INFORMATION
  Report Type: 
  Country: None (occurrence: None)
  Receive Date: 20040127
  Receipt Date: 20040119
  Transmission Date: 20041129
  Serious: Yes (Other)
  Sender: FDA-Public Use
  Company Number: ZONI001301

PATIENT
  Age: 56 Year
  Sex: Male

DRUGS (4)
  1. EXCEGRAN (ZONISAMIDE) [Suspect]
     Indication: EPILEPSY
     Dosage: 200 MG DAILY ORAL
     Route: 048
     Dates: start: 20030619, end: 20030724
  2. FAMOTIDINE [Concomitant]
  3. BLOPRESS (CANDESARTAN CILEXETIL [Concomitant]
  4. MAGNESIUM OXIDE (MAGNESIUM OXIDE) [Concomitant]

REACTIONS (7)
  - DRUG ERUPTION [None]
  - DRUG HYPERSENSITIVITY [None]
  - GENERALISED ERYTHEMA [None]
  - LYMPHADENOPATHY [None]
  - PAIN [None]
  - PRURITUS [None]
  - PYREXIA [None]
